FAERS Safety Report 9536723 (Version 1)
Quarter: 2013Q3

REPORT INFORMATION
  Report Type: Spontaneous
  Country: CO (occurrence: CO)
  Receive Date: 20130919
  Receipt Date: 20130919
  Transmission Date: 20140515
  Serious: Yes (Other)
  Sender: FDA-Public Use
  Company Number: CO-PFIZER INC-2013266862

PATIENT
  Age: 75 Year
  Sex: Female

DRUGS (2)
  1. XALACOM [Suspect]
     Indication: GLAUCOMA
     Dosage: 50 MG, 1X/DAY
     Route: 047
     Dates: start: 2001, end: 201302
  2. XALATAN [Suspect]
     Indication: GLAUCOMA
     Dosage: 2.5 ML, 1X/DAY
     Route: 047
     Dates: start: 201302

REACTIONS (2)
  - Arthralgia [Not Recovered/Not Resolved]
  - Gait disturbance [Unknown]
